FAERS Safety Report 7260130-6 (Version None)
Quarter: 2011Q1

REPORT INFORMATION
  Report Type: 
  Country: None (occurrence: None)
  Receive Date: 20110130
  Receipt Date: 20101004
  Transmission Date: 20110831
  Serious: No
  Sender: FDA-Public Use
  Company Number: US-ABBOTT-10P-163-0676586-00

PATIENT
  Sex: Female
  Weight: 77.18 kg

DRUGS (2)
  1. HUMIRA [Suspect]
     Indication: PSORIASIS
     Dates: start: 20100201
  2. LISINOPRIL [Concomitant]
     Indication: HYPERTENSION

REACTIONS (7)
  - FUNGAL INFECTION [None]
  - DYSURIA [None]
  - RASH [None]
  - ABDOMINAL DISCOMFORT [None]
  - ERYTHEMA [None]
  - URINARY INCONTINENCE [None]
  - RASH PAPULAR [None]
